FAERS Safety Report 23093568 (Version 1)
Quarter: 2023Q4

REPORT INFORMATION
  Report Type: Spontaneous
  Country: US (occurrence: None)
  Receive Date: 20231023
  Receipt Date: 20231023
  Transmission Date: 20240110
  Serious: No
  Sender: FDA-Public Use
  Company Number: US-ARIS GLOBAL-SUP202307-002739

PATIENT
  Age: 18 Year
  Sex: Male

DRUGS (2)
  1. QELBREE [Suspect]
     Active Substance: VILOXAZINE HYDROCHLORIDE
     Indication: Product used for unknown indication
     Dosage: 200 MG FOR FIRST WEEK
  2. QELBREE [Suspect]
     Active Substance: VILOXAZINE HYDROCHLORIDE
     Dosage: INCREASED TO 200 MG FOR TWO WEEKS

REACTIONS (3)
  - Migraine [Unknown]
  - Headache [Unknown]
  - Product dose omission issue [Unknown]
